FAERS Safety Report 21281117 (Version 3)
Quarter: 2022Q4

REPORT INFORMATION
  Report Type: Report from Study
  Country: US (occurrence: US)
  Receive Date: 20220901
  Receipt Date: 20221123
  Transmission Date: 20230112
  Serious: Yes (Other)
  Sender: FDA-Public Use
  Company Number: US-BRISTOL-MYERS SQUIBB COMPANY-2022-090736

PATIENT
  Age: 78 Year
  Sex: Female
  Weight: 84.82 kg

DRUGS (8)
  1. REVLIMID [Suspect]
     Active Substance: LENALIDOMIDE
     Indication: Plasma cell myeloma
     Dosage: DAILY 21 DAYS EVERY 28 DAYS?A3740A-EXP-31-AUG-2024
     Route: 048
     Dates: start: 202105
  2. REVLIMID [Suspect]
     Active Substance: LENALIDOMIDE
     Indication: Plasma cell myeloma in remission
  3. GRANISETRON HYDROCHLORIDE [Concomitant]
     Active Substance: GRANISETRON HYDROCHLORIDE
     Indication: Product used for unknown indication
  4. FLUARIX NOS [Concomitant]
     Active Substance: INFLUENZA VIRUS VACCINE
     Route: 065
  5. PFIZER-BIONTECH COVID-19 VACCINE [Concomitant]
     Active Substance: TOZINAMERAN
  6. PROBIOTICS NOS [Concomitant]
     Active Substance: PROBIOTICS NOS
  7. TRAVOPROST [Concomitant]
     Active Substance: TRAVOPROST
  8. VITAMIN D3 [Concomitant]
     Active Substance: CHOLECALCIFEROL

REACTIONS (12)
  - Diarrhoea [Unknown]
  - Stress [Unknown]
  - Gastrointestinal disorder [Unknown]
  - Diarrhoea [Recovering/Resolving]
  - Weight decreased [Recovering/Resolving]
  - Haemorrhoids [Unknown]
  - Pneumonia [Recovered/Resolved]
  - Decreased appetite [Recovering/Resolving]
  - Blood urine present [Unknown]
  - Skin disorder [Unknown]
  - Abdominal pain upper [Unknown]
  - Cough [Unknown]
